FAERS Safety Report 8488797-5 (Version None)
Quarter: 2012Q2

REPORT INFORMATION
  Report Type: 
  Country: None (occurrence: None)
  Receive Date: 20120625
  Receipt Date: 20120611
  Transmission Date: 20120825
  Serious: Yes (Hospitalization)
  Sender: FDA-Public Use
  Company Number: TPA2012A03880

PATIENT
  Age: 74 Year
  Sex: Female

DRUGS (6)
  1. ALDACTONE [Concomitant]
  2. AMLODIN OD (AMLODIPINE BESILATE) [Concomitant]
  3. MIYA BM (CLOSTRIDIUM BUTYRICUM) [Concomitant]
  4. LASIX [Concomitant]
  5. FEBURIC (FEBUXOSTAT) [Suspect]
     Indication: HYPERURICAEMIA
     Dosage: 10 MG (10 MG,1 IN 1 D) PER ORAL
     Route: 048
     Dates: start: 20120511, end: 20120530
  6. LIVACT (LEUCEINE, VALINE, ISOLEUCINE) [Concomitant]

REACTIONS (1)
  - AGRANULOCYTOSIS [None]
